FAERS Safety Report 4968117-0 (Version None)
Quarter: 2006Q2

REPORT INFORMATION
  Report Type: 
  Country: None (occurrence: None)
  Receive Date: 20060405
  Receipt Date: 20060223
  Transmission Date: 20061013
  Serious: Yes (Other)
  Sender: FDA-Public Use
  Company Number: 001#1#2006-00039

PATIENT
  Sex: Female

DRUGS (1)
  1. ALPROSTADIL [Suspect]

REACTIONS (4)
  - INFUSION SITE EXTRAVASATION [None]
  - PAIN [None]
  - PYREXIA [None]
  - SEPSIS [None]
